FAERS Safety Report 4770461-7 (Version None)
Quarter: 2005Q3

REPORT INFORMATION
  Report Type: 
  Country: None (occurrence: None)
  Receive Date: 20050915
  Receipt Date: 20050610
  Transmission Date: 20060218
  Serious: No
  Sender: FDA-Public Use
  Company Number: US-GLAXOSMITHKLINE-A0562190A

PATIENT
  Sex: Female

DRUGS (2)
  1. ABREVA [Suspect]
  2. LIP BALM [Concomitant]

REACTIONS (5)
  - HYPERSENSITIVITY [None]
  - LIP BLISTER [None]
  - LIP DRY [None]
  - LIP PAIN [None]
  - SWELLING FACE [None]
